FAERS Safety Report 8934096 (Version 1)
Quarter: 2012Q4

REPORT INFORMATION
  Report Type: 
  Country: US (occurrence: US)
  Receive Date: 20121129
  Receipt Date: 20121129
  Transmission Date: 20130627
  Serious: No
  Sender: FDA-Public Use
  Company Number: US-GLAXOSMITHKLINE-A0957533A

PATIENT
  Age: 21 Year
  Sex: Male

DRUGS (1)
  1. WELLBUTRIN SR [Suspect]
     Indication: ANXIETY
     Dosage: 100MG Twice per day
     Route: 048
     Dates: start: 201108, end: 20111121

REACTIONS (5)
  - Abnormal dreams [Recovering/Resolving]
  - Urticaria [Unknown]
  - Amnesia [Unknown]
  - Dissociation [Unknown]
  - Pruritus [Unknown]
